FAERS Safety Report 4431969-7 (Version None)
Quarter: 2004Q3

REPORT INFORMATION
  Report Type: 
  Country: None (occurrence: None)
  Receive Date: 20040819
  Receipt Date: 20040806
  Transmission Date: 20050211
  Serious: Yes (Death, Hospitalization, Other)
  Sender: FDA-Public Use
  Company Number: USA-2003-0010532

PATIENT
  Age: 68 Year
  Sex: Female

DRUGS (9)
  1. OXYCONTIN [Suspect]
     Indication: PAIN
     Dosage: SEE IMAGE
     Route: 048
     Dates: start: 19981207, end: 20010101
  2. TYLENOL W/ CODEINE [Suspect]
     Indication: PAIN
     Dosage: ORAL
     Route: 048
     Dates: end: 20010101
  3. XANAX [Suspect]
     Dosage: 2 MG, TID, ORAL
     Route: 048
  4. FLURAZEPAM [Suspect]
     Dosage: 30 MG, ORAL
     Route: 048
  5. CALCIUM [Concomitant]
  6. VITAMIN E(TOCOPHERODOL) [Concomitant]
  7. FOLIC ACID 9FOLIC ACID) [Concomitant]
  8. AMITRIPTYLINE HCL [Concomitant]
  9. KEFLEX [Concomitant]

REACTIONS (49)
  - ACUTE PSYCHOSIS [None]
  - AGGRESSION [None]
  - AGITATION [None]
  - ANXIETY DISORDER [None]
  - ARTHRALGIA [None]
  - ASTHENIA [None]
  - BACK PAIN [None]
  - BODY TEMPERATURE INCREASED [None]
  - BRONCHITIS ACUTE [None]
  - CARDIAC ARREST [None]
  - CHEST PAIN [None]
  - CHRONIC OBSTRUCTIVE AIRWAYS DISEASE EXACERBATED [None]
  - COMA [None]
  - CONFUSIONAL STATE [None]
  - CONSTIPATION [None]
  - DEHYDRATION [None]
  - DELIRIUM [None]
  - DIARRHOEA [None]
  - DISORIENTATION [None]
  - DRUG ABUSER [None]
  - DRUG DEPENDENCE [None]
  - DRUG SCREEN POSITIVE [None]
  - DRUG TOXICITY [None]
  - DYSPHAGIA [None]
  - DYSPNOEA [None]
  - FALL [None]
  - FIBROMYALGIA [None]
  - HALLUCINATION, VISUAL [None]
  - HYPERHIDROSIS [None]
  - HYPOXIA [None]
  - ILEUS [None]
  - INADEQUATE ANALGESIA [None]
  - INSOMNIA [None]
  - MARKEDLY REDUCED DIETARY INTAKE [None]
  - MUSCLE SPASMS [None]
  - NASAL CONGESTION [None]
  - NAUSEA [None]
  - NERVOUSNESS [None]
  - OEDEMA PERIPHERAL [None]
  - PAIN [None]
  - PAIN IN EXTREMITY [None]
  - PANIC REACTION [None]
  - PNEUMONIA [None]
  - SINUS TACHYCARDIA [None]
  - SPEECH DISORDER [None]
  - TREMOR [None]
  - VITAMIN B1 DECREASED [None]
  - VOMITING [None]
  - WEIGHT DECREASED [None]
